FAERS Safety Report 4385663-1 (Version None)
Quarter: 2004Q2

REPORT INFORMATION
  Report Type: 
  Country: None (occurrence: None)
  Receive Date: 20040623
  Receipt Date: 20040603
  Transmission Date: 20050107
  Serious: Yes (Death)
  Sender: FDA-Public Use
  Company Number: FR_031003067

PATIENT
  Age: 61 Year
  Sex: Male

DRUGS (3)
  1. ZYPREXA [Suspect]
     Dosage: 10 MG/1 DAY
     Dates: start: 20030522
  2. SYMBICORT [Concomitant]
  3. IMOVANE (ZOPICLONE) [Concomitant]

REACTIONS (1)
  - DEATH [None]
